FAERS Safety Report 8351566 (Version 7)
Quarter: 2015Q2

REPORT INFORMATION
  Report Type: Spontaneous
  Country: CA (occurrence: CA)
  Receive Date: 20120124
  Receipt Date: 20150511
  Transmission Date: 20150821
  Serious: Yes (Other)
  Sender: FDA-Public Use
  Company Number: CA-ROCHE-1032037

PATIENT
  Age: 62 Year
  Sex: Female

DRUGS (6)
  1. ADVAIR HFA [Concomitant]
     Active Substance: FLUTICASONE PROPIONATE\SALMETEROL XINAFOATE
  2. QVAR [Concomitant]
     Active Substance: BECLOMETHASONE DIPROPIONATE
     Route: 065
  3. XOLAIR [Suspect]
     Active Substance: OMALIZUMAB
     Route: 058
     Dates: start: 20150331
  4. VENTOLIN [Concomitant]
     Active Substance: ALBUTEROL SULFATE
  5. XOLAIR [Suspect]
     Active Substance: OMALIZUMAB
     Indication: ASTHMA
     Route: 058
     Dates: start: 20091209
  6. XOLAIR [Suspect]
     Active Substance: OMALIZUMAB
     Route: 058
     Dates: start: 20150428

REACTIONS (14)
  - Hot flush [Unknown]
  - Blood pressure increased [Unknown]
  - Blood pressure fluctuation [Recovering/Resolving]
  - Visual impairment [Unknown]
  - Headache [Unknown]
  - Dizziness [Unknown]
  - Palpitations [Unknown]
  - Sputum discoloured [Unknown]
  - Hypertension [Recovered/Resolved]
  - Labile hypertension [Unknown]
  - Dyspnoea [Unknown]
  - Tachycardia [Unknown]
  - Fatigue [Unknown]
  - Arrhythmia [Unknown]

NARRATIVE: CASE EVENT DATE: 20131022
